FAERS Safety Report 4887406-1 (Version None)
Quarter: 2006Q1

REPORT INFORMATION
  Report Type: 
  Country: None (occurrence: None)
  Receive Date: 20060117
  Receipt Date: 20051205
  Transmission Date: 20060701
  Serious: Yes (Other)
  Sender: FDA-Public Use
  Company Number: 1000306051-2005-00010

PATIENT
  Sex: Female

DRUGS (1)
  1. SKIN TISSUE HUMAN [Suspect]
     Indication: HERNIA REPAIR

REACTIONS (3)
  - BETA HAEMOLYTIC STREPTOCOCCAL INFECTION [None]
  - GRAFT COMPLICATION [None]
  - SEROMA [None]
